FAERS Safety Report 7418401-6 (Version None)
Quarter: 2011Q2

REPORT INFORMATION
  Report Type: 
  Country: None (occurrence: None)
  Receive Date: 20110415
  Receipt Date: 20110412
  Transmission Date: 20111010
  Serious: Yes (Death, Hospitalization)
  Sender: FDA-Public Use
  Company Number: FR-PFIZER INC-2011032495

PATIENT
  Age: 88 Year
  Sex: Male
  Weight: 70 kg

DRUGS (5)
  1. PREVISCAN [Concomitant]
     Route: 048
  2. NOROXIN [Concomitant]
     Indication: URINARY TRACT INFECTION
     Dosage: UNK
     Dates: start: 20110114
  3. DOXAZOSIN MESYLATE [Suspect]
     Dosage: 4 MG, 2X/DAY
     Dates: start: 20110114
  4. DOXAZOSIN MESYLATE [Suspect]
     Indication: HYPERTENSION
     Dosage: 8 MG, 1X/DAY
     Dates: start: 20030101, end: 20110113
  5. LEUPROLIDE ACETATE [Concomitant]
     Dosage: 30 MG, 1X/DAY, ONCE EVERY 6 MONTHS
     Dates: start: 20110115, end: 20110115

REACTIONS (2)
  - PLATELET COUNT DECREASED [None]
  - HEPATITIS [None]
